FAERS Safety Report 8238733-1 (Version None)
Quarter: 2012Q1

REPORT INFORMATION
  Report Type: 
  Country: None (occurrence: None)
  Receive Date: 20120327
  Receipt Date: 20120322
  Transmission Date: 20120608
  Serious: Yes (Hospitalization)
  Sender: FDA-Public Use
  Company Number: US-FRI-1000029289

PATIENT
  Age: 50 Year
  Sex: Female

DRUGS (3)
  1. VIIBRYD [Suspect]
     Indication: DEPRESSION
     Route: 048
     Dates: end: 20120315
  2. GILENYA [Concomitant]
  3. LORTAB [Concomitant]
     Indication: MULTIPLE SCLEROSIS

REACTIONS (1)
  - SEIZURE LIKE PHENOMENA [None]
